FAERS Safety Report 8470888-6 (Version None)
Quarter: 2012Q2

REPORT INFORMATION
  Report Type: 
  Country: None (occurrence: None)
  Receive Date: 20120627
  Receipt Date: 20120622
  Transmission Date: 20120825
  Serious: Yes (Disabling, Other)
  Sender: FDA-Public Use
  Company Number: GB-PFIZER INC-2012150352

PATIENT
  Age: 57 Year
  Sex: Female

DRUGS (5)
  1. ACETAMINOPHEN AND CODEINE PHOSPHATE [Concomitant]
     Dosage: UNK
  2. CITALOPRAM HYDROBROMIDE [Concomitant]
     Dosage: UNK
  3. VARENICLINE TARTRATE [Suspect]
     Indication: SMOKING CESSATION THERAPY
     Dosage: STARTER DOSE
     Route: 048
     Dates: start: 20120522, end: 20120101
  4. TRIMOVATE [Concomitant]
     Dosage: UNK
  5. VARENICLINE TARTRATE [Suspect]
     Dosage: 1 MG, 2X/DAY
     Route: 048
     Dates: start: 20120101, end: 20120101

REACTIONS (6)
  - PAIN [None]
  - EXFOLIATIVE RASH [None]
  - SKIN DISORDER [None]
  - WOUND SECRETION [None]
  - SKIN LESION [None]
  - GAIT DISTURBANCE [None]
